FAERS Safety Report 8055803-1 (Version None)
Quarter: 2011Q4

REPORT INFORMATION
  Report Type: 
  Country: None (occurrence: None)
  Receive Date: 20111215
  Receipt Date: 20110502
  Transmission Date: 20120403
  Serious: Yes (Hospitalization)
  Sender: FDA-Public Use
  Company Number: 1000016405

PATIENT
  Age: 71 Year
  Sex: Male
  Weight: 75.7 kg

DRUGS (23)
  1. ARICEPT [Suspect]
     Indication: DEMENTIA
     Dosage: 5 MG (5 MG,1 IN 1 D),ORAL ; 10 MG (10 MG,1 IN 1 D),ORAL ; 5 MG (5 MG,1 IN 1 D),ORAL
     Route: 048
     Dates: start: 20100512, end: 20100601
  2. ARICEPT [Suspect]
     Indication: AMNESIA
     Dosage: 5 MG (5 MG,1 IN 1 D),ORAL ; 10 MG (10 MG,1 IN 1 D),ORAL ; 5 MG (5 MG,1 IN 1 D),ORAL
     Route: 048
     Dates: start: 20100512, end: 20100601
  3. ARICEPT [Suspect]
     Indication: DEMENTIA
     Dosage: 5 MG (5 MG,1 IN 1 D),ORAL ; 10 MG (10 MG,1 IN 1 D),ORAL ; 5 MG (5 MG,1 IN 1 D),ORAL
     Route: 048
     Dates: start: 20100601
  4. ARICEPT [Suspect]
     Indication: AMNESIA
     Dosage: 5 MG (5 MG,1 IN 1 D),ORAL ; 10 MG (10 MG,1 IN 1 D),ORAL ; 5 MG (5 MG,1 IN 1 D),ORAL
     Route: 048
     Dates: start: 20100601
  5. ARICEPT [Suspect]
     Indication: DEMENTIA
     Dosage: 5 MG (5 MG,1 IN 1 D),ORAL ; 10 MG (10 MG,1 IN 1 D),ORAL ; 5 MG (5 MG,1 IN 1 D),ORAL
     Route: 048
     Dates: start: 20100414, end: 20100511
  6. ARICEPT [Suspect]
     Indication: AMNESIA
     Dosage: 5 MG (5 MG,1 IN 1 D),ORAL ; 10 MG (10 MG,1 IN 1 D),ORAL ; 5 MG (5 MG,1 IN 1 D),ORAL
     Route: 048
     Dates: start: 20100414, end: 20100511
  7. DILTIAZEM (DILTIAZEM HYDROCHLORIDE) (TABLETS) (DILTIAZEM HYDROCHLORIDE [Concomitant]
  8. AVODART (DUTASTERIDE) (TABLETS) (DUTASTERIDE) [Concomitant]
  9. ALPRAZOLAM (ALPRAZOLAM) (TABLETS) (ALPRAZOLAM) [Concomitant]
  10. DIAMOX [Suspect]
     Indication: HYPERTENSION
     Dosage: 1 MG (1 MG,1 IN 1 D),ORAL
     Route: 048
  11. METOPROLOL (METOPROLOL) (TABLETS) (METOPROLOL) [Concomitant]
  12. UROXATRAL [Suspect]
     Indication: PROSTATIC DISORDER
     Dosage: 10 MG (10 MG,1 IN 1 D),ORAL
     Route: 048
     Dates: start: 20091101
  13. VITAMIN D (VITAMIN D) (VITAMIN D) [Concomitant]
  14. NORVASC [Suspect]
     Indication: HYPERTENSION
     Dosage: 10 MG (10 MG,1 IN 1 D),ORAL
     Route: 048
  15. QUINAPRIL (QUINAPRIL) (TABLETS) (QUINAPRIL) [Concomitant]
  16. ZETIA [Concomitant]
  17. NAMENDA [Suspect]
     Indication: DEMENTIA
     Dosage: 5 MG (5 MG,1 IN 1 D),ORAL ; 10 MG (5 MG,2 IN 1 D),ORAL ; 20 MG (10 MG,2 IN 1 D),ORAL
     Route: 048
     Dates: end: 20110309
  18. NAMENDA [Suspect]
     Indication: DEMENTIA
     Dosage: 5 MG (5 MG,1 IN 1 D),ORAL ; 10 MG (5 MG,2 IN 1 D),ORAL ; 20 MG (10 MG,2 IN 1 D),ORAL
     Route: 048
     Dates: start: 20100918
  19. NAMENDA [Suspect]
     Indication: DEMENTIA
     Dosage: 5 MG (5 MG,1 IN 1 D),ORAL ; 10 MG (5 MG,2 IN 1 D),ORAL ; 20 MG (10 MG,2 IN 1 D),ORAL
     Route: 048
     Dates: start: 20110310
  20. AMBIEN [Suspect]
     Indication: INSOMNIA
  21. TOPROL-XL [Suspect]
     Indication: HYPERTENSION
     Dosage: 200 MG (200 MG,1 IN 1 D),ORAL
     Route: 048
  22. POTASSIUM CHLORIDE [Concomitant]
  23. FUROSEMIDE [Concomitant]

REACTIONS (17)
  - GAIT DISTURBANCE [None]
  - SOMNOLENCE [None]
  - ABASIA [None]
  - READING DISORDER [None]
  - DRUG INTERACTION [None]
  - MALAISE [None]
  - PNEUMONIA BACTERIAL [None]
  - RHINORRHOEA [None]
  - MUSCULAR WEAKNESS [None]
  - NAUSEA [None]
  - ASTHENIA [None]
  - DIZZINESS [None]
  - INSOMNIA [None]
  - DYSPNOEA [None]
  - FATIGUE [None]
  - DRY MOUTH [None]
  - ABDOMINAL DISCOMFORT [None]
